FAERS Safety Report 20623687 (Version 1)
Quarter: 2022Q1

REPORT INFORMATION
  Report Type: Spontaneous
  Country: US (occurrence: US)
  Receive Date: 20220322
  Receipt Date: 20220322
  Transmission Date: 20220423
  Serious: Yes (Death, Hospitalization, Other)
  Sender: FDA-Public Use
  Company Number: US-GILEAD-2022-0574358

PATIENT
  Age: 40 Year
  Sex: Female

DRUGS (1)
  1. YESCARTA [Suspect]
     Active Substance: AXICABTAGENE CILOLEUCEL
     Indication: Product used for unknown indication
     Dosage: UNK
     Route: 042
     Dates: start: 20210316, end: 20210316

REACTIONS (12)
  - Sepsis [Fatal]
  - Septic shock [Unknown]
  - Serum ferritin increased [Recovering/Resolving]
  - Hyperbilirubinaemia [Recovering/Resolving]
  - Transaminases increased [Recovering/Resolving]
  - Immune effector cell-associated neurotoxicity syndrome [Recovered/Resolved]
  - Cytokine release syndrome [Recovered/Resolved]
  - Haemophagocytic lymphohistiocytosis [Recovering/Resolving]
  - Infection [Unknown]
  - Renal failure [Recovered/Resolved]
  - Respiratory failure [Unknown]
  - Haemophagocytic lymphohistiocytosis [Recovering/Resolving]

NARRATIVE: CASE EVENT DATE: 20210316
